FAERS Safety Report 4473147-1 (Version None)
Quarter: 2004Q4

REPORT INFORMATION
  Report Type: 
  Country: None (occurrence: None)
  Receive Date: 20041008
  Receipt Date: 20040929
  Transmission Date: 20050328
  Serious: Yes (Hospitalization)
  Sender: FDA-Public Use
  Company Number: K200401422

PATIENT
  Age: 82 Year
  Sex: Male

DRUGS (10)
  1. RAMIPRIL [Suspect]
     Dosage: 20 MG, QD, ORAL
     Route: 048
  2. CORVASAL (MOLSIDOMINE) TABLET, 4MG [Suspect]
  3. ASPEGIC 325 [Suspect]
     Dosage: 100 MG, QD, ORAL
     Route: 048
  4. FLUDEX (INDAPAMIDE) TABLET, 1 TABLET [Suspect]
     Dosage: 1 DF TABLET, QD, ORAL
     Route: 048
  5. TENORMIN [Suspect]
  6. ATORVASTATIN CALCIUM [Suspect]
  7. ZYLORIC ^FAES^ (ALLOPURINOL) TABLET [Concomitant]
  8. CHIBRO-PROSCAR (FINASTERIDE) TABLET [Suspect]
  9. FORLAX (MACROGOL) POWDER (ECEPT[DPTO]) [Concomitant]
  10. MAXEPA (POTASSIUM BICARBONATE, GLUCOSE, CITRIC ACID, SODIUM BICARBONAT [Concomitant]

REACTIONS (1)
  - RECTAL HAEMORRHAGE [None]
